FAERS Safety Report 8534066-4 (Version None)
Quarter: 2012Q3

REPORT INFORMATION
  Report Type: 
  Country: None (occurrence: None)
  Receive Date: 20120724
  Receipt Date: 20120719
  Transmission Date: 20120928
  Serious: Yes (Hospitalization)
  Sender: FDA-Public Use
  Company Number: GB-ROCHE-1091089

PATIENT
  Sex: Male
  Weight: 12.8 kg

DRUGS (4)
  1. CYCLOPHOSPHAMIDE [Suspect]
     Indication: NEOPLASM MALIGNANT
     Dosage: DATE OF LAST DOSE PRIOR TO SAE 17/JUN/2012
     Route: 048
     Dates: start: 20120614
  2. AVASTIN [Suspect]
     Indication: NEOPLASM MALIGNANT
     Dosage: DATE OF LAST DOSE PRIOR TO SAE 12/JUL/2012
     Route: 042
     Dates: start: 20111117
  3. METOCLOPRAMIDE [Concomitant]
     Dates: start: 20111115
  4. VINORELBINE TARTRATE [Suspect]
     Indication: NEOPLASM MALIGNANT
     Dosage: DATE OF LAST DOSE PRIOR TO SAE 12/JUL/2012
     Route: 042
     Dates: start: 20120614

REACTIONS (1)
  - TORUS FRACTURE [None]
